FAERS Safety Report 12651012 (Version 1)
Quarter: 2016Q3

REPORT INFORMATION
  Report Type: Spontaneous
  Country: US (occurrence: None)
  Receive Date: 20160812
  Receipt Date: 20160812
  Transmission Date: 20161109
  Serious: Yes (Other)
  Sender: FDA-Public Use
  Company Number: None

PATIENT
  Age: 29 Year
  Sex: Female
  Weight: 52.62 kg

DRUGS (1)
  1. BOTOX [Suspect]
     Active Substance: ONABOTULINUMTOXINA
     Indication: SKIN WRINKLING
     Dates: start: 20160325

REACTIONS (11)
  - Headache [None]
  - Asthenia [None]
  - Blepharospasm [None]
  - Dizziness [None]
  - Eyelid ptosis [None]
  - Memory impairment [None]
  - Slow speech [None]
  - Fatigue [None]
  - Arthralgia [None]
  - Chest discomfort [None]
  - Dry eye [None]

NARRATIVE: CASE EVENT DATE: 20160602
